FAERS Safety Report 9501268 (Version 1)
Quarter: 2013Q1

REPORT INFORMATION
  Report Type: Spontaneous
  Country: US (occurrence: None)
  Receive Date: 20130107
  Receipt Date: 20130107
  Transmission Date: 20140127
  Serious: No
  Sender: FDA-Public Use
  Company Number: PHEH2012US021474

PATIENT
  Age: 46 Year
  Sex: Female

DRUGS (1)
  1. GILENYA (FINGOLIMOD) [Suspect]
     Route: 048
     Dates: start: 20121005, end: 20121101

REACTIONS (2)
  - Nausea [None]
  - Diarrhoea [None]
